FAERS Safety Report 23109978 (Version 1)
Quarter: 2023Q4

REPORT INFORMATION
  Report Type: Spontaneous
  Country: US (occurrence: None)
  Receive Date: 20231024
  Receipt Date: 20231024
  Transmission Date: 20240110
  Serious: Yes (Life-Threatening, Hospitalization)
  Sender: FDA-Public Use
  Company Number: None

PATIENT
  Age: 78 Year
  Sex: Male
  Weight: 119 kg

DRUGS (1)
  1. IRON DEXTRAN [Suspect]
     Active Substance: IRON DEXTRAN
     Dosage: FREQUENCY : ONCE;?
     Route: 042
     Dates: start: 20230517, end: 20230517

REACTIONS (4)
  - Flushing [None]
  - Hypotension [None]
  - Respiratory distress [None]
  - Infusion related reaction [None]

NARRATIVE: CASE EVENT DATE: 20230517
